FAERS Safety Report 21926050 (Version 1)
Quarter: 2023Q1

REPORT INFORMATION
  Report Type: Spontaneous
  Country: US (occurrence: None)
  Receive Date: 20230127
  Receipt Date: 20230127
  Transmission Date: 20230418
  Serious: Yes (Hospitalization)
  Sender: FDA-Public Use
  Company Number: None

PATIENT
  Age: 59 Year
  Sex: Female

DRUGS (10)
  1. ENBREL [Suspect]
     Active Substance: ETANERCEPT
     Indication: Rheumatoid arthritis
     Dosage: 50 MG/ML SUBCUTANEOUS ??INJECT 1 PEN SUBCUTANEOUSLY EVERY 7 DAYS
     Route: 058
     Dates: start: 20191127
  2. ALBUTEROL AER HFA [Concomitant]
  3. ALBUTEROL NEB 1.25MG/3 [Concomitant]
     Dosage: OTHER STRENGTH : 1.25MG/3;?
  4. AZITHROMYCIN TAB 250MG [Concomitant]
  5. BUSPIRONE [Concomitant]
     Active Substance: BUSPIRONE HYDROCHLORIDE
  6. CLONAZEPAM TAB 0.5MG [Concomitant]
  7. FLUOXETINE CAP 40MG [Concomitant]
  8. METHYLPHENID TAB 10MG [Concomitant]
  9. METHYLPHENID TAB 5MG [Concomitant]
  10. PREDNISONE [Concomitant]
     Active Substance: PREDNISONE

REACTIONS (2)
  - Knee arthroplasty [None]
  - Therapy interrupted [None]

NARRATIVE: CASE EVENT DATE: 20221130
